FAERS Safety Report 22008040 (Version 1)
Quarter: 2023Q1

REPORT INFORMATION
  Report Type: Spontaneous
  Country: AU (occurrence: AU)
  Receive Date: 20230218
  Receipt Date: 20230218
  Transmission Date: 20230417
  Serious: Yes (Other)
  Sender: FDA-Public Use
  Company Number: AU-AMGEN-AUSSP2023025498

PATIENT
  Age: 65 Year
  Sex: Female

DRUGS (20)
  1. ADALIMUMAB [Suspect]
     Active Substance: ADALIMUMAB
     Indication: Product used for unknown indication
     Dosage: 40 MILLIGRAM
     Route: 058
     Dates: start: 20150519, end: 20150813
  2. RINVOQ [Suspect]
     Active Substance: UPADACITINIB
     Indication: Product used for unknown indication
     Dosage: 15 MILLIGRAM, QD
     Route: 048
     Dates: start: 20200901
  3. ABATACEPT [Concomitant]
     Active Substance: ABATACEPT
     Indication: Product used for unknown indication
     Dosage: 125 MILLIGRAM, QWK
     Route: 058
     Dates: start: 20150813, end: 20160118
  4. ASTRAZENECA COVID-19 VACCINE [Concomitant]
     Active Substance: AZD-1222
     Indication: COVID-19 immunisation
     Dosage: UNK
     Route: 030
     Dates: start: 20210624, end: 20210624
  5. ASTRAZENECA COVID-19 VACCINE [Concomitant]
     Active Substance: AZD-1222
     Dosage: UNK
     Route: 030
     Dates: start: 20210916, end: 20210916
  6. AZITHROMYCIN [Concomitant]
     Active Substance: AZITHROMYCIN
     Indication: Bronchiectasis
  7. LEUCOVORIN [Concomitant]
     Active Substance: LEUCOVORIN
     Indication: Product used for unknown indication
  8. HYDROXYCHLOROQUINE SULFATE [Concomitant]
     Active Substance: HYDROXYCHLOROQUINE SULFATE
     Indication: Product used for unknown indication
     Dosage: 400 MILLIGRAM
  9. LEFLUNOMIDE [Concomitant]
     Active Substance: LEFLUNOMIDE
     Indication: Product used for unknown indication
     Dosage: 10 MILLIGRAM
  10. METHOTREXATE [Concomitant]
     Active Substance: METHOTREXATE
     Indication: Product used for unknown indication
     Dosage: 15 MILLIGRAM
  11. METHOTREXATE [Concomitant]
     Active Substance: METHOTREXATE
     Dosage: 15 MILLIGRAM
     Dates: start: 20150813, end: 20180918
  12. PFIZER-BIONTECH COVID-19 VACCINE [Concomitant]
     Active Substance: TOZINAMERAN
     Indication: COVID-19 immunisation
     Dosage: UNK
     Route: 030
     Dates: start: 20211207, end: 20211207
  13. PFIZER-BIONTECH COVID-19 VACCINE [Concomitant]
     Active Substance: TOZINAMERAN
     Dosage: UNK
     Route: 030
     Dates: start: 20220411, end: 20220411
  14. PREDNISOLONE [Concomitant]
     Active Substance: PREDNISOLONE
     Indication: Product used for unknown indication
     Dosage: UNK
     Dates: start: 201905
  15. RITUXIMAB [Concomitant]
     Active Substance: RITUXIMAB
     Indication: Product used for unknown indication
     Dosage: 2 GRAM, Q6MO
     Route: 040
     Dates: start: 20170410, end: 20180918
  16. SHINGRIX [Concomitant]
     Active Substance: RECOMBINANT VARICELLA ZOSTER VIRUS (VZV) GLYCOPROTEIN E
     Indication: Varicella immunisation
     Dosage: UNK
     Dates: start: 20220310, end: 20220310
  17. SULFASALAZINE [Concomitant]
     Active Substance: SULFASALAZINE
     Indication: Product used for unknown indication
  18. TOCILIZUMAB [Concomitant]
     Active Substance: TOCILIZUMAB
     Indication: Product used for unknown indication
     Dosage: UNK UNK, Q4WK
     Route: 040
     Dates: start: 20161018, end: 20170118
  19. TOCILIZUMAB [Concomitant]
     Active Substance: TOCILIZUMAB
     Dosage: 162 MILLIGRAM, QWK
     Route: 058
     Dates: start: 20170131, end: 20170214
  20. TOFACITINIB [Concomitant]
     Active Substance: TOFACITINIB
     Indication: Product used for unknown indication
     Dosage: 10 MILLIGRAM, QD
     Dates: start: 20160118, end: 20161004

REACTIONS (15)
  - Bronchiectasis [Unknown]
  - Rheumatoid arthritis [Unknown]
  - Cataract [Recovered/Resolved]
  - Pneumonia [Unknown]
  - Pneumonia haemophilus [Unknown]
  - Neutropenia [Unknown]
  - C-reactive protein increased [Unknown]
  - Intraocular lens implant [Unknown]
  - Osteoarthritis [Unknown]
  - Osteopenia [Unknown]
  - Red blood cell sedimentation rate increased [Unknown]
  - Depression [Unknown]
  - Drug ineffective [Recovered/Resolved]
  - Respiratory tract infection [Unknown]
  - Urticaria [Unknown]

NARRATIVE: CASE EVENT DATE: 20150519
